FAERS Safety Report 20981183 (Version 22)
Quarter: 2023Q4

REPORT INFORMATION
  Report Type: Spontaneous
  Country: US (occurrence: US)
  Receive Date: 20220620
  Receipt Date: 20231212
  Transmission Date: 20240109
  Serious: Yes (Hospitalization, Other)
  Sender: FDA-Public Use
  Company Number: US-PFIZER INC-PV202200004182

PATIENT
  Age: 71 Year
  Sex: Female
  Weight: 63.04 kg

DRUGS (24)
  1. IBRANCE [Suspect]
     Active Substance: PALBOCICLIB
     Indication: Breast cancer female
     Dosage: 21 DAYS, OFF 7 DAYS
     Dates: start: 202005
  2. IBRANCE [Suspect]
     Active Substance: PALBOCICLIB
     Dosage: UNK
  3. IBRANCE [Suspect]
     Active Substance: PALBOCICLIB
     Dosage: 125 MG, DAILY
     Dates: start: 202205
  4. IBRANCE [Suspect]
     Active Substance: PALBOCICLIB
     Dosage: 120 MG, DAILY
     Dates: start: 202205
  5. IBRANCE [Suspect]
     Active Substance: PALBOCICLIB
     Dosage: FOR 21 DAYS
     Dates: start: 202206
  6. IBRANCE [Suspect]
     Active Substance: PALBOCICLIB
     Dosage: 125 MG, DAILY
     Dates: start: 2022
  7. IBRANCE [Suspect]
     Active Substance: PALBOCICLIB
     Dosage: 125 MG, DAILY
     Dates: start: 202206, end: 2023
  8. IBRANCE [Suspect]
     Active Substance: PALBOCICLIB
     Dosage: TAKE 100 MG BY MOUTH DAILY X 21 DAYS THEN 7 DAYS OFF AND REPEAT
     Route: 048
     Dates: start: 202205
  9. IBRANCE [Suspect]
     Active Substance: PALBOCICLIB
     Dosage: 100 MG
     Dates: start: 20231204
  10. FASLODEX [Concomitant]
     Active Substance: FULVESTRANT
     Indication: Hormone therapy
     Dosage: UNK
     Dates: start: 202005
  11. FASLODEX [Concomitant]
     Active Substance: FULVESTRANT
     Dosage: UNK (IM X 2)
     Route: 030
     Dates: start: 202205
  12. FASLODEX [Concomitant]
     Active Substance: FULVESTRANT
     Dosage: UNK
     Dates: start: 202207
  13. ZOMETA [Concomitant]
     Active Substance: ZOLEDRONIC ACID
     Indication: Supportive care
     Dosage: UNK
     Dates: start: 202005
  14. ZOMETA [Concomitant]
     Active Substance: ZOLEDRONIC ACID
     Dosage: INFUSION
     Route: 041
     Dates: start: 202205
  15. ZOMETA [Concomitant]
     Active Substance: ZOLEDRONIC ACID
     Dosage: UNK
     Dates: start: 202207
  16. FILGRASTIM [Concomitant]
     Active Substance: FILGRASTIM
     Dosage: UNK
     Dates: start: 202005
  17. TESSALON [Concomitant]
     Active Substance: BENZONATATE
     Indication: Cough
     Dosage: TAKE 1-2 CAPSULES (100-200 MG TOTAL) BY MOUTH 3 (THREE) TIMES DAILY AS NEEDED
     Route: 048
  18. PULMICORT TURBUHALER [Concomitant]
     Active Substance: BUDESONIDE
     Indication: Bronchospasm
     Dosage: TAKE 2 MLS(0.5 MG TOTAL) BY NEBULIZATION 2 (TWO) TIMES DAILY AS NEEDED
  19. PULMICORT TURBUHALER [Concomitant]
     Active Substance: BUDESONIDE
     Indication: Chronic obstructive pulmonary disease
  20. ALBUTEROL\IPRATROPIUM [Concomitant]
     Active Substance: ALBUTEROL\IPRATROPIUM
     Indication: Muscle spasms
     Dosage: (2.5 MG BASE)/3ML/USE 3 TIMES DAILY FOR 7 DAYS, THEN TWICE A DAY MAINTENANCE OF BREATH
  21. ALBUTEROL\IPRATROPIUM [Concomitant]
     Active Substance: ALBUTEROL\IPRATROPIUM
     Indication: Chronic obstructive pulmonary disease
  22. PROTONIX [Concomitant]
     Active Substance: PANTOPRAZOLE SODIUM
     Dosage: 40 MG, DAILY
     Route: 048
  23. DEXTROMETHORPHAN HYDROBROMIDE\PROMETHAZINE HYDROCHLORIDE [Concomitant]
     Active Substance: DEXTROMETHORPHAN HYDROBROMIDE\PROMETHAZINE HYDROCHLORIDE
     Indication: Nasopharyngitis
     Dosage: 5 ML, AS NEEDED (TAKE 5 MLS BY MOUTH 4 (FOUR) TIMES DAILY AS NEEDED)
     Route: 048
  24. DEXTROMETHORPHAN HYDROBROMIDE\PROMETHAZINE HYDROCHLORIDE [Concomitant]
     Active Substance: DEXTROMETHORPHAN HYDROBROMIDE\PROMETHAZINE HYDROCHLORIDE
     Indication: Cough

REACTIONS (11)
  - Pneumonia [Recovered/Resolved]
  - Thrombosis [Unknown]
  - Pulmonary thrombosis [Recovered/Resolved]
  - Platelet count decreased [Not Recovered/Not Resolved]
  - Haemoptysis [Unknown]
  - Alopecia [Not Recovered/Not Resolved]
  - White blood cell count decreased [Not Recovered/Not Resolved]
  - Asthenia [Not Recovered/Not Resolved]
  - Fatigue [Not Recovered/Not Resolved]
  - Nausea [Recovered/Resolved]
  - Off label use [Unknown]

NARRATIVE: CASE EVENT DATE: 20220501
